FAERS Safety Report 24431237 (Version 4)
Quarter: 2025Q2

REPORT INFORMATION
  Report Type: Spontaneous
  Country: US (occurrence: US)
  Receive Date: 20241014
  Receipt Date: 20250519
  Transmission Date: 20250717
  Serious: Yes (Death, Life-Threatening, Hospitalization, Other)
  Sender: AUROBINDO
  Company Number: US-MLMSERVICE-20240923-PI202083-00050-1

PATIENT
  Age: 20 Year
  Sex: Female

DRUGS (3)
  1. AMLODIPINE [Suspect]
     Active Substance: AMLODIPINE BESYLATE
     Indication: Product used for unknown indication
     Route: 048
  2. AMLODIPINE [Suspect]
     Active Substance: AMLODIPINE BESYLATE
     Route: 048
  3. FLUOXETINE [Suspect]
     Active Substance: FLUOXETINE HYDROCHLORIDE
     Indication: Product used for unknown indication
     Route: 048

REACTIONS (14)
  - Cardiac arrest [Fatal]
  - Overdose [Fatal]
  - Multiple organ dysfunction syndrome [Unknown]
  - Non-cardiogenic pulmonary oedema [Recovered/Resolved]
  - Vasoplegia syndrome [Unknown]
  - Renal impairment [Unknown]
  - Hypoxia [Recovering/Resolving]
  - Cardiac failure high output [Unknown]
  - Pulmonary oedema [Unknown]
  - Renal failure [Unknown]
  - Generalised oedema [Unknown]
  - Somnolence [Unknown]
  - Intentional overdose [Unknown]
  - Hypotension [Unknown]
